FAERS Safety Report 8326357-7 (Version None)
Quarter: 2012Q2

REPORT INFORMATION
  Report Type: 
  Country: None (occurrence: None)
  Receive Date: 20120501
  Receipt Date: 20120426
  Transmission Date: 20120825
  Serious: Yes (Hospitalization)
  Sender: FDA-Public Use
  Company Number: US-ACTELION-A-NJ2012-64226

PATIENT

DRUGS (6)
  1. TYVASO [Concomitant]
  2. COUMADIN [Concomitant]
  3. DIGOXIN [Concomitant]
  4. TRACLEER [Suspect]
     Dosage: 62.5 MG, BID
     Route: 048
     Dates: start: 20020601
  5. TRACLEER [Suspect]
     Indication: PULMONARY ARTERIAL HYPERTENSION
     Dosage: 125 MG, BID
     Route: 048
  6. ADCIRCA [Concomitant]

REACTIONS (2)
  - BREAST OPERATION [None]
  - DRUG DOSE OMISSION [None]
